FAERS Safety Report 9455254 (Version 6)
Quarter: 2013Q4

REPORT INFORMATION
  Report Type: Report from Study
  Country: US (occurrence: US)
  Receive Date: 20130813
  Receipt Date: 20131121
  Transmission Date: 20140711
  Serious: Yes (Hospitalization, Other)
  Sender: FDA-Public Use
  Company Number: US-JNJFOC-20130802305

PATIENT
  Age: 19 Year
  Sex: Male
  Weight: 57.6 kg

DRUGS (3)
  1. REMICADE [Suspect]
     Indication: CROHN^S DISEASE
     Route: 042
     Dates: start: 20081210
  2. HUMIRA [Concomitant]
     Indication: CROHN^S DISEASE
     Route: 065
     Dates: start: 20100429
  3. PREDNISONE [Concomitant]
     Indication: CROHN^S DISEASE
     Route: 065

REACTIONS (4)
  - Crohn^s disease [Recovered/Resolved]
  - Depression [Recovered/Resolved]
  - Clostridium difficile infection [Recovered/Resolved]
  - Anal fistula [Recovered/Resolved with Sequelae]
